FAERS Safety Report 7094500-6 (Version None)
Quarter: 2010Q4

REPORT INFORMATION
  Report Type: 
  Country: None (occurrence: None)
  Receive Date: 20101110
  Receipt Date: 20101103
  Transmission Date: 20110411
  Serious: Yes (Other)
  Sender: FDA-Public Use
  Company Number: PHHY2010DE72716

PATIENT
  Sex: Female

DRUGS (1)
  1. EXTAVIA [Suspect]
     Indication: MULTIPLE SCLEROSIS
     Dosage: 1 MG, QOD
     Route: 058
     Dates: start: 20090320

REACTIONS (2)
  - ENDODONTIC PROCEDURE [None]
  - TOOTH EXTRACTION [None]
